FAERS Safety Report 23398049 (Version 2)
Quarter: 2024Q1

REPORT INFORMATION
  Report Type: Spontaneous
  Country: RU (occurrence: None)
  Receive Date: 20240112
  Receipt Date: 20240117
  Transmission Date: 20240410
  Serious: Yes (Life-Threatening, Other)
  Sender: FDA-Public Use
  Company Number: 2024A008215

PATIENT
  Age: 52 Year
  Sex: Male

DRUGS (4)
  1. ROSUVASTATIN [Suspect]
     Active Substance: ROSUVASTATIN
     Route: 048
     Dates: start: 2010, end: 202112
  2. ROSUVASTATIN [Suspect]
     Active Substance: ROSUVASTATIN
     Route: 048
  3. ATORVASTATIN CALCIUM [Concomitant]
     Active Substance: ATORVASTATIN CALCIUM
  4. EZETIMIBE [Concomitant]
     Active Substance: EZETIMIBE

REACTIONS (13)
  - Myocardial infarction [Unknown]
  - Ischaemic stroke [Unknown]
  - Coronary artery stenosis [Unknown]
  - Brachiocephalic artery stenosis [Unknown]
  - Peripheral artery stenosis [Unknown]
  - Atrial fibrillation [Unknown]
  - Angina pectoris [Unknown]
  - Subclavian artery occlusion [Unknown]
  - Coronary artery stenosis [Unknown]
  - Renal artery stenosis [Unknown]
  - Coronary artery occlusion [Unknown]
  - Coronary artery stenosis [Unknown]
  - Coronary artery occlusion [Unknown]

NARRATIVE: CASE EVENT DATE: 20100101
